FAERS Safety Report 22113880 (Version 1)
Quarter: 2023Q1

REPORT INFORMATION
  Report Type: Spontaneous
  Country: US (occurrence: US)
  Receive Date: 20230320
  Receipt Date: 20230320
  Transmission Date: 20230417
  Serious: No
  Sender: FDA-Public Use
  Company Number: US-AUROBINDO-AUR-APL-2022-052895

PATIENT

DRUGS (1)
  1. CEFPROZIL [Suspect]
     Active Substance: CEFPROZIL
     Indication: Product used for unknown indication
     Dosage: 6 MILLILITER, TWO TIMES A DAY
     Route: 048
     Dates: start: 20220928

REACTIONS (2)
  - Product storage error [Unknown]
  - Product dispensing error [Unknown]
